FAERS Safety Report 17149989 (Version 2)
Quarter: 2019Q4

REPORT INFORMATION
  Report Type: Report from Study
  Country: None (occurrence: CA)
  Receive Date: 20191213
  Receipt Date: 20191230
  Transmission Date: 20200122
  Serious: Yes (Other)
  Sender: FDA-Public Use
  Company Number: CA-ABBVIE-19K-028-3004212-00

PATIENT
  Age: 56 Year
  Sex: Male

DRUGS (5)
  1. CYCLOBENZAPRINE. [Concomitant]
     Active Substance: CYCLOBENZAPRINE
     Indication: PAIN
     Route: 048
  2. CELEBREX [Concomitant]
     Active Substance: CELECOXIB
     Indication: PAIN
     Route: 048
  3. HUMIRA [Suspect]
     Active Substance: ADALIMUMAB
     Route: 058
     Dates: start: 2019
  4. COVERSYL PLUS [Suspect]
     Active Substance: INDAPAMIDE\PERINDOPRIL
     Indication: HYPERTENSION
     Dosage: 8MG/2.5 MG
     Route: 048
     Dates: start: 2019, end: 2019
  5. HUMIRA [Suspect]
     Active Substance: ADALIMUMAB
     Indication: ANKYLOSING SPONDYLITIS
     Route: 058
     Dates: start: 20190218, end: 20191106

REACTIONS (11)
  - Stress [Not Recovered/Not Resolved]
  - Fall [Recovered/Resolved]
  - Headache [Unknown]
  - Concussion [Unknown]
  - Dizziness [Recovered/Resolved]
  - Root canal infection [Unknown]
  - Anxiety [Not Recovered/Not Resolved]
  - Hypertension [Not Recovered/Not Resolved]
  - Loss of consciousness [Recovered/Resolved]
  - Contusion [Unknown]
  - Vertigo [Recovered/Resolved]

NARRATIVE: CASE EVENT DATE: 2019
